FAERS Safety Report 9465556 (Version 2)
Quarter: 2013Q4

REPORT INFORMATION
  Report Type: Spontaneous
  Country: CA (occurrence: CA)
  Receive Date: 20130820
  Receipt Date: 20131223
  Transmission Date: 20140711
  Serious: Yes (Hospitalization)
  Sender: FDA-Public Use
  Company Number: CA-SANOFI-AVENTIS-2013SA081539

PATIENT
  Age: 67 Year
  Sex: Male

DRUGS (13)
  1. GLYBURIDE [Suspect]
     Indication: PRODUCT USED FOR UNKNOWN INDICATION
     Route: 065
  2. LANTUS [Suspect]
     Indication: PRODUCT USED FOR UNKNOWN INDICATION
     Dosage: FORM: SOLUTION
     Route: 058
     Dates: start: 20120412
  3. GABAPENTIN [Suspect]
     Indication: PRODUCT USED FOR UNKNOWN INDICATION
     Route: 065
  4. NORTRIPTYLINE [Suspect]
     Indication: PRODUCT USED FOR UNKNOWN INDICATION
     Route: 065
  5. ONGLYZA [Suspect]
     Indication: TYPE 2 DIABETES MELLITUS
     Route: 065
     Dates: start: 20101101, end: 20120925
  6. PLACEBO [Suspect]
     Indication: TYPE 2 DIABETES MELLITUS
  7. TAMSULOSIN [Suspect]
     Indication: PRODUCT USED FOR UNKNOWN INDICATION
     Route: 065
  8. EZETROL [Concomitant]
  9. ASPIRIN [Concomitant]
  10. BETA BLOCKING AGENTS [Concomitant]
  11. ANTITHROMBOTIC AGENTS [Concomitant]
  12. ANGIOTENSIN II ANTAGONISTS [Concomitant]
  13. HMG COA REDUCTASE INHIBITORS [Concomitant]

REACTIONS (8)
  - Muscular weakness [Unknown]
  - Abdominal pain upper [Recovering/Resolving]
  - Hypomagnesaemia [Unknown]
  - Vertigo [Not Recovered/Not Resolved]
  - Nausea [Recovering/Resolving]
  - Toxicity to various agents [Recovering/Resolving]
  - Dizziness [Not Recovered/Not Resolved]
  - Chest pain [Unknown]
